FAERS Safety Report 5023969-3 (Version None)
Quarter: 2006Q2

REPORT INFORMATION
  Report Type: 
  Country: None (occurrence: None)
  Receive Date: 20060426
  Receipt Date: 20060210
  Transmission Date: 20061013
  Serious: Yes (Other)
  Sender: FDA-Public Use
  Company Number: 2006021564

PATIENT
  Sex: Female

DRUGS (1)
  1. LYRICA [Suspect]
     Indication: DIABETIC NEUROPATHY
     Dosage: 25 MG (25 MG, 1 IN 1 D),
     Dates: start: 20060101

REACTIONS (2)
  - DRUG INEFFECTIVE [None]
  - PAIN [None]
